FAERS Safety Report 7830883-4 (Version None)
Quarter: 2011Q4

REPORT INFORMATION
  Report Type: 
  Country: None (occurrence: None)
  Receive Date: 20111021
  Receipt Date: 20111018
  Transmission Date: 20120403
  Serious: No
  Sender: FDA-Public Use
  Company Number: US-PFIZER INC-2011251045

PATIENT
  Sex: Female
  Weight: 49.887 kg

DRUGS (2)
  1. ZOCOR [Concomitant]
     Indication: HYPERTENSION
     Dosage: 20 MG, 1X/DAY
     Route: 048
  2. TOVIAZ [Suspect]
     Indication: URINARY INCONTINENCE
     Dosage: 4 MG, 1X/DAY
     Route: 048
     Dates: start: 20111017, end: 20111018

REACTIONS (2)
  - DIZZINESS [None]
  - SOMNOLENCE [None]
